FAERS Safety Report 25841026 (Version 1)
Quarter: 2025Q3

REPORT INFORMATION
  Report Type: Spontaneous
  Country: US (occurrence: None)
  Receive Date: 20250923
  Receipt Date: 20250923
  Transmission Date: 20251020
  Serious: No
  Sender: FDA-CTU
  Company Number: None

PATIENT
  Age: 32 Month
  Sex: Male
  Weight: 15.66 kg

DRUGS (8)
  1. DUPIXENT [Suspect]
     Active Substance: DUPILUMAB
     Indication: Asthma
     Dosage: OTHER FREQUENCY : EVERY 4 WEEKS;?
     Route: 058
     Dates: start: 20250102
  2. DUPIXENT [Suspect]
     Active Substance: DUPILUMAB
     Indication: Dermatitis atopic
  3. certizine [Concomitant]
  4. ELIDEL [Concomitant]
     Active Substance: PIMECROLIMUS
  5. FLUTICASONE PROPIONATE [Concomitant]
     Active Substance: FLUTICASONE PROPIONATE
  6. Hydroxyzine 25mg/ml soln [Concomitant]
  7. Miralox 17 gm/scoop powder [Concomitant]
  8. Montelukast Sodium 4mg [Concomitant]

REACTIONS (1)
  - Rash papular [None]

NARRATIVE: CASE EVENT DATE: 20250108
